FAERS Safety Report 9920845 (Version 2)
Quarter: 2014Q2

REPORT INFORMATION
  Report Type: Report from Study
  Country: CA (occurrence: CA)
  Receive Date: 20140225
  Receipt Date: 20140416
  Transmission Date: 20141212
  Serious: Yes (Other)
  Sender: FDA-Public Use
  Company Number: CA-ROCHE-1351351

PATIENT
  Sex: Female

DRUGS (13)
  1. RITUXAN [Suspect]
     Indication: RHEUMATOID ARTHRITIS
     Route: 042
     Dates: start: 20120607
  2. RITUXAN [Suspect]
     Indication: SYSTEMIC LUPUS ERYTHEMATOSUS
  3. ACETAMINOPHEN [Concomitant]
     Indication: PREMEDICATION
     Route: 048
     Dates: start: 20120607
  4. DIPHENHYDRAMINE HCL [Concomitant]
     Indication: PREMEDICATION
     Route: 048
     Dates: start: 20120607
  5. METHYLPREDNISOLONE [Concomitant]
     Indication: PREMEDICATION
     Route: 042
     Dates: start: 20120607
  6. HYDROXYCHLOROQUINE [Concomitant]
  7. AZATHIOPRINE [Concomitant]
  8. NEXIUM [Concomitant]
  9. ADVIL [Concomitant]
  10. DONEPEZIL [Concomitant]
  11. PREDNISONE [Concomitant]
  12. HYDROCHLOROTHIAZIDE [Concomitant]
  13. DEXTROAMPHETAMINE [Concomitant]

REACTIONS (3)
  - Cough [Not Recovered/Not Resolved]
  - Rib fracture [Unknown]
  - Pyrexia [Unknown]
